FAERS Safety Report 9845282 (Version 2)
Quarter: 2014Q1

REPORT INFORMATION
  Report Type: Report from Study
  Country: JP (occurrence: JP)
  Receive Date: 20140127
  Receipt Date: 20140127
  Transmission Date: 20141002
  Serious: Yes (Hospitalization)
  Sender: FDA-Public Use
  Company Number: JP-ASTELLAS-2013JP013523

PATIENT
  Age: 74 Year
  Sex: Female
  Weight: 38.9 kg

DRUGS (11)
  1. TACROLIMUS CAPSULES [Suspect]
     Indication: RHEUMATOID ARTHRITIS
     Dosage: 1.5 MG, UID/QD
     Route: 048
     Dates: start: 20130614, end: 20130701
  2. TACROLIMUS CAPSULES [Suspect]
     Dosage: 3 MG, UID/QD
     Route: 048
     Dates: start: 20130702, end: 20131119
  3. ENBREL [Concomitant]
     Indication: RHEUMATOID ARTHRITIS
     Dosage: 50 MG, WEEKLY
     Route: 065
     Dates: start: 20130319, end: 20130903
  4. CIMZIA [Concomitant]
     Indication: RHEUMATOID ARTHRITIS
     Dosage: 400 MG, Q2W
     Route: 065
     Dates: start: 20130910, end: 20131008
  5. CIMZIA [Concomitant]
     Dosage: UNK MG, MONTHLY
     Route: 065
     Dates: start: 20131105, end: 20131119
  6. TRAMADOL HYDROCHLORIDE AND ACETAMINOPHEN [Concomitant]
     Indication: RHEUMATOID ARTHRITIS
     Dosage: 1 DF, QID
     Route: 048
  7. PROTECADIN [Concomitant]
     Indication: PROPHYLAXIS
     Dosage: 10 MG, BID
     Route: 048
  8. TENORMIN [Concomitant]
     Indication: HYPERTENSION
     Dosage: 12.5 MG, UID/QD
     Route: 048
  9. PLAVIX [Concomitant]
     Indication: PROPHYLAXIS
     Dosage: 75 MG, UID/QD
     Route: 048
  10. LIPITOR [Concomitant]
     Indication: HYPERLIPIDAEMIA
     Dosage: 10 MG, UID/QD
     Route: 048
  11. HALCION [Concomitant]
     Indication: INSOMNIA
     Dosage: 0.25 MG, UID/QD
     Route: 048

REACTIONS (3)
  - Drug ineffective [Unknown]
  - Rheumatoid arthritis [Unknown]
  - Rheumatoid lung [Recovering/Resolving]
